FAERS Safety Report 4755671-7 (Version None)
Quarter: 2005Q3

REPORT INFORMATION
  Report Type: 
  Country: None (occurrence: None)
  Receive Date: 20050830
  Receipt Date: 20050622
  Transmission Date: 20060218
  Serious: No
  Sender: FDA-Public Use
  Company Number: US-BRISTOL-MYERS SQUIBB COMPANY-13012760

PATIENT
  Sex: Male
  Weight: 86 kg

DRUGS (8)
  1. ABILIFY [Suspect]
     Indication: BIPOLAR DISORDER
     Route: 048
     Dates: start: 20030101, end: 20050503
  2. ABILIFY [Suspect]
     Indication: PSYCHOTIC DISORDER
     Route: 048
     Dates: start: 20030101, end: 20050503
  3. LORAZEPAM [Concomitant]
  4. TEMAZEPAM [Concomitant]
  5. NEURONTIN [Concomitant]
  6. SERMION [Concomitant]
  7. LOVASTATIN [Concomitant]
  8. NOVOLOG [Concomitant]

REACTIONS (1)
  - DYSKINESIA [None]
